FAERS Safety Report 13290619 (Version 2)
Quarter: 2017Q2

REPORT INFORMATION
  Report Type: Spontaneous
  Country: US (occurrence: US)
  Receive Date: 20170302
  Receipt Date: 20170523
  Transmission Date: 20170830
  Serious: No
  Sender: FDA-Public Use
  Company Number: US-TEVA-742574ACC

PATIENT
  Sex: Female

DRUGS (11)
  1. COPAXONE [Suspect]
     Active Substance: GLATIRAMER ACETATE
     Indication: MULTIPLE SCLEROSIS
     Route: 058
     Dates: start: 20140308
  2. CLARITHROMYCIN. [Concomitant]
     Active Substance: CLARITHROMYCIN
  3. AMOXICILLIN. [Concomitant]
     Active Substance: AMOXICILLIN
  4. BUPROPN [Concomitant]
  5. HYDROCODONE BITARTRATE AND ACETAMINOPHEN [Concomitant]
     Active Substance: ACETAMINOPHEN\HYDROCODONE BITARTRATE
  6. POLYETH GLY [Concomitant]
  7. LANSOPR/AMOX [Concomitant]
  8. LANSOPRAZOLE. [Concomitant]
     Active Substance: LANSOPRAZOLE
  9. LIDOCAINE. [Concomitant]
     Active Substance: LIDOCAINE
  10. FAMOTIDINE. [Concomitant]
     Active Substance: FAMOTIDINE
  11. LIDOCAINE. [Concomitant]
     Active Substance: LIDOCAINE

REACTIONS (2)
  - Drug dose omission [Not Recovered/Not Resolved]
  - Malaise [Unknown]
